FAERS Safety Report 9361177 (Version 1)
Quarter: 2013Q2

REPORT INFORMATION
  Report Type: Spontaneous
  Country: US (occurrence: US)
  Receive Date: 20130621
  Receipt Date: 20130621
  Transmission Date: 20140414
  Serious: No
  Sender: FDA-Public Use
  Company Number: US-PFIZER INC-2013183099

PATIENT
  Age: 73 Year
  Sex: Male

DRUGS (3)
  1. VIAGRA [Suspect]
     Dosage: 50 MG, UNK
  2. VIAGRA [Suspect]
     Dosage: 100 MG, UNK
  3. VIAGRA [Suspect]
     Dosage: 150 MG, UNK

REACTIONS (2)
  - Off label use [Unknown]
  - Drug ineffective [Unknown]
